FAERS Safety Report 20884471 (Version 1)
Quarter: 2022Q2

REPORT INFORMATION
  Report Type: Spontaneous
  Country: US (occurrence: None)
  Receive Date: 20220527
  Receipt Date: 20220527
  Transmission Date: 20220721
  Serious: Yes (Death, Hospitalization)
  Sender: FDA-Public Use
  Company Number: None

PATIENT
  Sex: Male
  Weight: 80.7 kg

DRUGS (2)
  1. CASODEX [Suspect]
     Active Substance: BICALUTAMIDE
     Dates: end: 20220519
  2. LEUPROLIDE ACETATE [Suspect]
     Active Substance: LEUPROLIDE ACETATE
     Dates: end: 20220510

REACTIONS (8)
  - Presyncope [None]
  - Nausea [None]
  - Haematemesis [None]
  - General physical health deterioration [None]
  - Cardiac arrest [None]
  - Cardiac arrest [None]
  - Anaemia [None]
  - Second primary malignancy [None]

NARRATIVE: CASE EVENT DATE: 20220520
